FAERS Safety Report 4445038-3 (Version None)
Quarter: 2004Q3

REPORT INFORMATION
  Report Type: 
  Country: None (occurrence: None)
  Receive Date: 20040908
  Receipt Date: 20040908
  Transmission Date: 20050211
  Serious: Yes (Hospitalization)
  Sender: FDA-Public Use
  Company Number: None

PATIENT
  Age: 79 Year
  Sex: Female
  Weight: 43 kg

DRUGS (3)
  1. ASPIRIN [Suspect]
     Indication: CARDIAC DISORDER
     Dosage: 81 MG PO DAILY
     Route: 048
  2. ASPIRIN [Suspect]
     Indication: CEREBROVASCULAR ACCIDENT PROPHYLAXIS
     Dosage: 81 MG PO DAILY
     Route: 048
  3. ASPIRIN [Suspect]
     Indication: PROPHYLAXIS
     Dosage: 81 MG PO DAILY
     Route: 048

REACTIONS (5)
  - ASTHENIA [None]
  - GASTROINTESTINAL HAEMORRHAGE [None]
  - MELAENA [None]
  - NAUSEA [None]
  - WEIGHT DECREASED [None]
